FAERS Safety Report 7523524-7 (Version None)
Quarter: 2011Q2

REPORT INFORMATION
  Report Type: 
  Country: None (occurrence: None)
  Receive Date: 20110525
  Receipt Date: 20110510
  Transmission Date: 20111010
  Serious: Yes (Death, Hospitalization)
  Sender: FDA-Public Use
  Company Number: 2011MA005736

PATIENT
  Age: 64 Year
  Sex: Male

DRUGS (1)
  1. BETAMETHASONE DIPROPIONATE [Suspect]
     Indication: ASTHMA
     Dosage: 16% MG, OD, IV
     Route: 042
     Dates: start: 20080501

REACTIONS (11)
  - VENTRICULAR TACHYCARDIA [None]
  - FATIGUE [None]
  - PLATELET COUNT DECREASED [None]
  - NASOPHARYNGITIS [None]
  - CRYPTOCOCCAL FUNGAEMIA [None]
  - ASTHMATIC CRISIS [None]
  - DISSEMINATED INTRAVASCULAR COAGULATION [None]
  - BODY TEMPERATURE DECREASED [None]
  - MUSCULAR WEAKNESS [None]
  - DECREASED APPETITE [None]
  - PNEUMONIA CRYPTOCOCCAL [None]
